FAERS Safety Report 5285434-8 (Version None)
Quarter: 2007Q1

REPORT INFORMATION
  Report Type: 
  Country: None (occurrence: None)
  Receive Date: 20070328
  Receipt Date: 20070313
  Transmission Date: 20070707
  Serious: Yes (Hospitalization)
  Sender: FDA-Public Use
  Company Number: 2006BI011362

PATIENT
  Age: 63 Year
  Sex: Male
  Weight: 101.1521 kg

DRUGS (1)
  1. AVONEX [Suspect]
     Indication: MULTIPLE SCLEROSIS
     Dosage: 30 UG QW IM
     Route: 030
     Dates: start: 20030327

REACTIONS (5)
  - ASTHENIA [None]
  - CARDIAC FLUTTER [None]
  - CLOSTRIDIAL INFECTION [None]
  - MUSCLE ATROPHY [None]
  - URINARY TRACT INFECTION [None]
